FAERS Safety Report 16976686 (Version 2)
Quarter: 2019Q4

REPORT INFORMATION
  Report Type: Spontaneous
  Country: CA (occurrence: CA)
  Receive Date: 20191030
  Receipt Date: 20191105
  Transmission Date: 20200122
  Serious: Yes (Other)
  Sender: FDA-Public Use
  Company Number: CA-PFIZER INC-2019465359

PATIENT
  Age: 73 Year
  Sex: Male

DRUGS (2)
  1. REMICADE [Concomitant]
     Active Substance: INFLIXIMAB
     Dosage: 300 MG, CYCLIC (EVERY (Q) 8 WEEKS)
     Route: 042
     Dates: start: 20020613, end: 20191024
  2. METHOTREXATE SODIUM. [Suspect]
     Active Substance: METHOTREXATE SODIUM
     Dosage: UNKNOWN DOSE, WEEKLY

REACTIONS (2)
  - Therapeutic product effect incomplete [Unknown]
  - Skin cancer [Unknown]
